FAERS Safety Report 6258001-7 (Version None)
Quarter: 2009Q3

REPORT INFORMATION
  Report Type: 
  Country: None (occurrence: None)
  Receive Date: 20090707
  Receipt Date: 20090626
  Transmission Date: 20100115
  Serious: Yes (Other)
  Sender: FDA-Public Use
  Company Number: FR-JNJFOC-20090701123

PATIENT
  Age: 27 Year
  Sex: Female

DRUGS (3)
  1. ITRACONAZOLE [Suspect]
     Indication: DRUG USE FOR UNKNOWN INDICATION
     Route: 065
  2. FLUTICASONE [Interacting]
     Indication: DRUG USE FOR UNKNOWN INDICATION
     Route: 055
  3. PULMOZYME [Concomitant]
     Route: 065

REACTIONS (2)
  - ADRENAL INSUFFICIENCY [None]
  - DRUG INTERACTION [None]
